FAERS Safety Report 11051418 (Version 1)
Quarter: 2015Q2

REPORT INFORMATION
  Report Type: Spontaneous
  Country: US (occurrence: None)
  Receive Date: 20150420
  Receipt Date: 20150420
  Transmission Date: 20150821
  Serious: Yes (Other)
  Sender: FDA-Public Use
  Company Number: None

PATIENT
  Age: 6 Year
  Sex: Male
  Weight: 22.45 kg

DRUGS (2)
  1. CYPROHEPTADINE 25 ML PERIACTIN [Suspect]
     Active Substance: CYPROHEPTADINE
     Indication: CYCLIC VOMITING SYNDROME
     Dosage: TAKEN BY MOUTH
     Route: 048
     Dates: start: 20150325, end: 20150331
  2. ZOFRAN [Concomitant]
     Active Substance: ONDANSETRON HYDROCHLORIDE

REACTIONS (3)
  - Accidental overdose [None]
  - Drug dispensing error [None]
  - Product label issue [None]

NARRATIVE: CASE EVENT DATE: 20150325
